FAERS Safety Report 5879736-1 (Version None)
Quarter: 2008Q3

REPORT INFORMATION
  Report Type: 
  Country: None (occurrence: None)
  Receive Date: 20080912
  Receipt Date: 20080723
  Transmission Date: 20090109
  Serious: Yes (Disabling, Other)
  Sender: FDA-Public Use
  Company Number: US-PURDUE-USA_2008_0034593

PATIENT
  Sex: Female

DRUGS (9)
  1. OXYCONTIN [Suspect]
     Indication: PAIN
     Dosage: 40 MG, Q12H
     Route: 048
     Dates: start: 20000101
  2. INSULIN [Concomitant]
     Indication: DIABETES MELLITUS
     Dosage: 1 INJ, PM
     Route: 030
     Dates: start: 20000101
  3. BENICAR [Concomitant]
     Indication: BLOOD PRESSURE
     Dosage: 1 TABLET, DAILY
     Route: 048
  4. PREDNISONE TAB [Concomitant]
     Indication: DRUG USE FOR UNKNOWN INDICATION
     Dosage: 40 MG, BID
  5. LORTAB [Concomitant]
     Indication: DRUG USE FOR UNKNOWN INDICATION
     Dosage: 30 MG, DAILY
  6. NEURONTIN [Concomitant]
     Indication: DRUG USE FOR UNKNOWN INDICATION
     Dosage: 300 MG, TID
  7. TOPAMAX [Concomitant]
     Indication: DRUG USE FOR UNKNOWN INDICATION
     Dosage: 3 TABLET, DAILY
  8. NEXIUM [Concomitant]
     Indication: GASTRIC DISORDER
     Dosage: 40 MG, UNK
  9. XANAX [Concomitant]
     Indication: DRUG USE FOR UNKNOWN INDICATION
     Dosage: 2 TABLET, DAILY

REACTIONS (11)
  - ANOREXIA [None]
  - CONSTIPATION [None]
  - DEAFNESS [None]
  - DIARRHOEA [None]
  - GASTRIC PERFORATION [None]
  - HALLUCINATION [None]
  - HALLUCINATION, AUDITORY [None]
  - NAUSEA [None]
  - NERVOUSNESS [None]
  - PARANOIA [None]
  - TINNITUS [None]
